FAERS Safety Report 14959633 (Version 1)
Quarter: 2018Q2

REPORT INFORMATION
  Report Type: Spontaneous
  Country: US (occurrence: US)
  Receive Date: 20180531
  Receipt Date: 20180531
  Transmission Date: 20180711
  Serious: No
  Sender: FDA-Public Use
  Company Number: US-PERRIGO-18US000884

PATIENT
  Sex: Male

DRUGS (1)
  1. MINOXIDIL. [Suspect]
     Active Substance: MINOXIDIL
     Indication: ALOPECIA
     Dosage: 1 CAPFUL, BID
     Route: 061
     Dates: start: 201711, end: 20180111

REACTIONS (3)
  - Incorrect dose administered [Recovered/Resolved]
  - Erectile dysfunction [Recovered/Resolved]
  - Product administered at inappropriate site [Recovered/Resolved]

NARRATIVE: CASE EVENT DATE: 201711
